FAERS Safety Report 6008068-6 (Version None)
Quarter: 2008Q4

REPORT INFORMATION
  Report Type: 
  Country: None (occurrence: None)
  Receive Date: 20081217
  Receipt Date: 20080811
  Transmission Date: 20090506
  Serious: No
  Sender: FDA-Public Use
  Company Number: US-ASTRAZENECA-2008UW16543

PATIENT
  Age: 896 Month
  Sex: Male
  Weight: 84.4 kg

DRUGS (3)
  1. CRESTOR [Suspect]
     Indication: BLOOD CHOLESTEROL INCREASED
     Route: 048
     Dates: start: 20050101
  2. PLAVIX [Concomitant]
  3. COREG [Concomitant]

REACTIONS (4)
  - BLOOD CREATININE INCREASED [None]
  - DYSGEUSIA [None]
  - MUSCULAR WEAKNESS [None]
  - WEIGHT DECREASED [None]
